FAERS Safety Report 15676967 (Version 1)
Quarter: 2018Q4

REPORT INFORMATION
  Report Type: Spontaneous
  Country: US (occurrence: US)
  Receive Date: 20181130
  Receipt Date: 20181130
  Transmission Date: 20190205
  Serious: Yes (Other)
  Sender: FDA-Public Use
  Company Number: US-MACLEODS PHARMACEUTICALS US LTD-MAC2018018716

PATIENT

DRUGS (1)
  1. RIZATRIPTAN. [Suspect]
     Active Substance: RIZATRIPTAN
     Indication: MIGRAINE
     Dosage: 12 MILLIGRAM, BID PILLS
     Route: 048
     Dates: start: 20180111, end: 20180411

REACTIONS (7)
  - Swelling face [Unknown]
  - Muscle swelling [Unknown]
  - Feeling hot [Unknown]
  - Feeling cold [Unknown]
  - Pain [Unknown]
  - Contusion [Unknown]
  - Peripheral swelling [Unknown]
